FAERS Safety Report 21891909 (Version 1)
Quarter: 2023Q1

REPORT INFORMATION
  Report Type: Spontaneous
  Country: ZA (occurrence: None)
  Receive Date: 20230120
  Receipt Date: 20230120
  Transmission Date: 20230418
  Serious: Yes (Hospitalization)
  Sender: FDA-Public Use
  Company Number: 2023A015306

PATIENT
  Age: 58 Year
  Sex: Female

DRUGS (6)
  1. VIMOVO [Suspect]
     Active Substance: ESOMEPRAZOLE MAGNESIUM\NAPROXEN
     Indication: Arthritis
     Dosage: 500 MILLIGRAM, 2/DAY
     Route: 048
  2. QUETIAPINE [Suspect]
     Active Substance: QUETIAPINE
     Indication: Bipolar disorder
     Dosage: 100 MILLIGRAM, 1/DAY
     Route: 048
  3. ALPRAZOLAM [Suspect]
     Active Substance: ALPRAZOLAM
     Indication: Stress
     Dosage: 0.5 MILLIGRAM, 2/DAY
     Route: 048
  4. ENALAPRIL MALEATE [Suspect]
     Active Substance: ENALAPRIL MALEATE
     Indication: Hypertension
     Dosage: 20 MILLIGRAM, 1/DAY
     Route: 048
  5. AMLODIPINE BESYLATE [Suspect]
     Active Substance: AMLODIPINE BESYLATE
     Indication: Hypertension
     Dosage: 10 MILLIGRAM, 1/DAY
     Route: 048
  6. AMITRIPTYLINE [Suspect]
     Active Substance: AMITRIPTYLINE
     Indication: Stress
     Dosage: 25 MILLIGRAM, 1/DAY
     Route: 048

REACTIONS (3)
  - Fall [Unknown]
  - Hypoaesthesia [Unknown]
  - Spinal disorder [Unknown]

NARRATIVE: CASE EVENT DATE: 20220101
